FAERS Safety Report 4717081-8 (Version None)
Quarter: 2005Q3

REPORT INFORMATION
  Report Type: 
  Country: None (occurrence: None)
  Receive Date: 20050712
  Receipt Date: 20040625
  Transmission Date: 20060218
  Serious: Yes (Other)
  Sender: FDA-Public Use
  Company Number: PHEH2004US07211

PATIENT
  Age: 63 Year
  Sex: Female
  Weight: 109.8 kg

DRUGS (2)
  1. GLEEVEC [Suspect]
     Indication: CHRONIC MYELOID LEUKAEMIA
     Dosage: 600 MG, QD, ORAL;  400 MG, QD, ORAL
     Route: 048
     Dates: start: 20010801, end: 20031201
  2. GLEEVEC [Suspect]
     Indication: CHRONIC MYELOID LEUKAEMIA
     Dosage: 600 MG, QD, ORAL;  400 MG, QD, ORAL
     Route: 048
     Dates: start: 20010528

REACTIONS (1)
  - PANCYTOPENIA [None]
